FAERS Safety Report 7389925-5 (Version None)
Quarter: 2011Q1

REPORT INFORMATION
  Report Type: 
  Country: None (occurrence: None)
  Receive Date: 20110325
  Receipt Date: 20110311
  Transmission Date: 20110831
  Serious: Yes (Hospitalization)
  Sender: FDA-Public Use
  Company Number: 2010002509

PATIENT
  Age: 66 Year
  Sex: Male
  Weight: 98 kg

DRUGS (7)
  1. ERLOTINIB (ERLOTINIB) (TABLET) (ERLOTINIB) [Suspect]
     Indication: PANCREATIC CARCINOMA
     Dosage: (100 MG, QD, ORAL)
     Route: 048
     Dates: start: 20100511
  2. LOVASTATIN [Concomitant]
  3. PROPAFENONE HCL [Concomitant]
  4. NEXIUM [Concomitant]
  5. GDC-0449 (CAPSULES) [Suspect]
     Indication: PANCREATIC CARCINOMA
     Dosage: (150 MG, QD) , ORAL
     Route: 048
     Dates: start: 20100511
  6. DILTIAZEM (DILITAZEM) [Concomitant]
  7. GEMCITABINE [Suspect]
     Indication: PANCREATIC CARCINOMA
     Dosage: (1000 MG/'M2, DAYS 1, 8 AND 15), INTERVENOUS
     Route: 042
     Dates: start: 20100511

REACTIONS (6)
  - DIARRHOEA [None]
  - FATIGUE [None]
  - DYSPNOEA [None]
  - CHEST PAIN [None]
  - PYREXIA [None]
  - NAUSEA [None]
